FAERS Safety Report 13735696 (Version 1)
Quarter: 2017Q3

REPORT INFORMATION
  Report Type: Spontaneous
  Country: US (occurrence: US)
  Receive Date: 20170708
  Receipt Date: 20170708
  Transmission Date: 20171127
  Serious: Yes (Other)
  Sender: FDA-Public Use
  Company Number: None

PATIENT
  Age: 64 Year
  Sex: Female
  Weight: 53.1 kg

DRUGS (8)
  1. VAGIFEM [Concomitant]
     Active Substance: ESTRADIOL
  2. ZYRTEC [Concomitant]
     Active Substance: CETIRIZINE HYDROCHLORIDE
  3. CALCIUM WITH VITAMIN D [Concomitant]
     Active Substance: CALCIUM\VITAMIN D
  4. PROLIA [Concomitant]
     Active Substance: DENOSUMAB
  5. CLONAZEPAM. [Suspect]
     Active Substance: CLONAZEPAM
     Indication: PANIC ATTACK
     Route: 048
  6. BECONASE AQ [Concomitant]
     Active Substance: BECLOMETHASONE DIPROPIONATE MONOHYDRATE
  7. PRAVASTATIN. [Concomitant]
     Active Substance: PRAVASTATIN
  8. ASTEPRO [Concomitant]
     Active Substance: AZELASTINE HYDROCHLORIDE

REACTIONS (17)
  - Impaired work ability [None]
  - Skin burning sensation [None]
  - Muscle twitching [None]
  - Nausea [None]
  - Quality of life decreased [None]
  - Diarrhoea [None]
  - Dyspnoea [None]
  - Withdrawal syndrome [None]
  - Dry eye [None]
  - Abdominal pain upper [None]
  - Alopecia [None]
  - Migraine [None]
  - Tremor [None]
  - Agoraphobia [None]
  - Anxiety [None]
  - Myalgia [None]
  - Weight decreased [None]

NARRATIVE: CASE EVENT DATE: 20120101
